FAERS Safety Report 10699364 (Version 1)
Quarter: 2015Q1

REPORT INFORMATION
  Report Type: Spontaneous
  Country: US (occurrence: US)
  Receive Date: 20150109
  Receipt Date: 20150109
  Transmission Date: 20150721
  Serious: No
  Sender: FDA-Public Use
  Company Number: US-BRISTOL-MYERS SQUIBB COMPANY-BMS-2014-005902

PATIENT
  Age: 88 Year
  Sex: Male

DRUGS (1)
  1. SPRYCEL [Suspect]
     Active Substance: DASATINIB
     Indication: NEOPLASM PROSTATE
     Dosage: 50 MG, QD
     Route: 048
     Dates: start: 201307

REACTIONS (3)
  - Diarrhoea [Unknown]
  - Decreased appetite [Unknown]
  - Chills [Unknown]

NARRATIVE: CASE EVENT DATE: 20141227
